FAERS Safety Report 8454166-7 (Version None)
Quarter: 2012Q2

REPORT INFORMATION
  Report Type: 
  Country: None (occurrence: None)
  Receive Date: 20120620
  Receipt Date: 20120321
  Transmission Date: 20120825
  Serious: Yes (Life-Threatening)
  Sender: FDA-Public Use
  Company Number: FR-FRI-1000028584

PATIENT
  Sex: Female
  Weight: 65 kg

DRUGS (4)
  1. ESCITALOPRAM [Suspect]
     Indication: DEPRESSION
     Dosage: 20 MG
     Route: 048
     Dates: start: 20110701, end: 20120101
  2. SOTALOL HCL [Suspect]
     Indication: EXTRASYSTOLES
  3. SOTALOL HCL [Suspect]
     Indication: HYPERTENSION
     Dosage: 80 MG
     Route: 048
     Dates: start: 20110101
  4. ESCITALOPRAM [Suspect]
     Indication: BURNOUT SYNDROME

REACTIONS (1)
  - BRADYCARDIA [None]
